FAERS Safety Report 6453479-8 (Version None)
Quarter: 2009Q4

REPORT INFORMATION
  Report Type: 
  Country: None (occurrence: None)
  Receive Date: 20091124
  Receipt Date: 20091112
  Transmission Date: 20100525
  Serious: Yes (Other)
  Sender: FDA-Public Use
  Company Number: US-PFIZER INC-2009298266

PATIENT
  Sex: Male
  Weight: 36.3 kg

DRUGS (2)
  1. ZOLOFT [Suspect]
     Indication: DEPRESSION
     Dosage: UNK
     Route: 048
     Dates: start: 20090301
  2. MIRALAX [Concomitant]
     Dosage: UNK

REACTIONS (1)
  - DENTAL CARIES [None]
